FAERS Safety Report 6257301-4 (Version None)
Quarter: 2009Q3

REPORT INFORMATION
  Report Type: 
  Country: None (occurrence: None)
  Receive Date: 20090706
  Receipt Date: 20090624
  Transmission Date: 20100115
  Serious: Yes (Life-Threatening, Other)
  Sender: FDA-Public Use
  Company Number: TW-PFIZER INC-2009232276

PATIENT
  Age: 68 Year

DRUGS (1)
  1. SUNITINIB MALATE [Suspect]
     Indication: RENAL CELL CARCINOMA
     Dosage: 37.5 MG, DAILY, FOR 4 WEEKS FOLLOWED BY 2 WEEKS OFF

REACTIONS (2)
  - CARDIOMYOPATHY [None]
  - RHABDOMYOLYSIS [None]
